FAERS Safety Report 8462435-X (Version None)
Quarter: 2012Q2

REPORT INFORMATION
  Report Type: 
  Country: None (occurrence: None)
  Receive Date: 20120625
  Receipt Date: 20120618
  Transmission Date: 20120825
  Serious: Yes (Death, Other)
  Sender: FDA-Public Use
  Company Number: JP-PFIZER INC-2012061510

PATIENT
  Age: 79 Year
  Sex: Male
  Weight: 52 kg

DRUGS (11)
  1. VFEND [Suspect]
     Indication: SYSTEMIC MYCOSIS
     Dosage: 300 MG, 1X/DAY
     Route: 041
     Dates: start: 20120221, end: 20120221
  2. VFEND [Suspect]
     Dosage: 200 MG, 1X/DAY
     Route: 041
     Dates: start: 20120227, end: 20120227
  3. WARFARIN [Concomitant]
     Indication: SURGERY
     Dosage: 1 DF, 1X/DAY
     Route: 048
  4. CARVEDILOL [Concomitant]
     Indication: ATRIAL FIBRILLATION
     Dosage: 1.25 MG, 1X/DAY
     Route: 048
  5. DORIPENEM MONOHYDRATE [Concomitant]
     Indication: SEPSIS
     Dosage: 0.25 MG, 1X/DAY
     Route: 048
     Dates: start: 20120221, end: 20120229
  6. PREDNISOLONE [Concomitant]
     Indication: ADRENAL INSUFFICIENCY
     Dosage: 20 MG, 2X/DAY
     Route: 048
  7. FUNGIZONE [Concomitant]
     Indication: OESOPHAGEAL CANDIDIASIS
     Dosage: UNK
     Route: 048
     Dates: start: 20120220, end: 20120221
  8. BETAMETHASONE [Concomitant]
     Indication: ADRENAL INSUFFICIENCY
     Dosage: 2 MG, 1X/DAY
     Route: 048
     Dates: start: 20120222, end: 20120307
  9. VFEND [Suspect]
     Dosage: 200 MG, 1X/DAY
     Route: 041
     Dates: start: 20120222, end: 20120225
  10. ASPIRIN [Concomitant]
     Indication: SURGERY
     Dosage: 100 MG, 1X/DAY
     Route: 048
  11. LANSOPRAZOLE [Concomitant]
     Indication: GASTROOESOPHAGEAL REFLUX DISEASE
     Dosage: 15 MG, 2X/DAY
     Route: 048

REACTIONS (4)
  - SEPSIS [None]
  - PANCYTOPENIA [None]
  - STOMATITIS [None]
  - SKIN EXFOLIATION [None]
